FAERS Safety Report 18766278 (Version 1)
Quarter: 2021Q1

REPORT INFORMATION
  Report Type: Spontaneous
  Country: ES (occurrence: ES)
  Receive Date: 20210121
  Receipt Date: 20210121
  Transmission Date: 20210419
  Serious: Yes (Hospitalization, Other)
  Sender: FDA-Public Use
  Company Number: ES-AUROBINDO-AUR-APL-2021-002189

PATIENT
  Age: 44 Year
  Sex: Male
  Weight: 67.5 kg

DRUGS (2)
  1. YURELAX [Suspect]
     Active Substance: CYCLOBENZAPRINE HYDROCHLORIDE
     Indication: SELF-MEDICATION
     Dosage: 10 MILLIGRAM,2 WEEK
     Route: 048
     Dates: start: 202005, end: 20200905
  2. PARACETAMOL [Suspect]
     Active Substance: ACETAMINOPHEN
     Indication: MIGRAINE
     Dosage: 1 GRAM, EVERY WEEK
     Route: 048
     Dates: start: 20200204, end: 20200905

REACTIONS (5)
  - Pruritus [Recovered/Resolved]
  - Jaundice [Recovered/Resolved]
  - Hepatitis cholestatic [Recovered/Resolved]
  - Asthenia [Recovered/Resolved]
  - Choluria [Recovered/Resolved]

NARRATIVE: CASE EVENT DATE: 20200905
